FAERS Safety Report 20698651 (Version 8)
Quarter: 2022Q4

REPORT INFORMATION
  Report Type: Spontaneous
  Country: US (occurrence: US)
  Receive Date: 20220412
  Receipt Date: 20221209
  Transmission Date: 20230113
  Serious: Yes (Hospitalization, Other)
  Sender: FDA-Public Use
  Company Number: US-BEH-2022143968

PATIENT
  Age: 76 Year
  Sex: Female
  Weight: 107 kg

DRUGS (39)
  1. HIZENTRA [Suspect]
     Active Substance: HUMAN IMMUNOGLOBULIN G
     Indication: Primary immunodeficiency syndrome
     Dosage: 10 GRAM, QW
     Route: 058
     Dates: start: 20220331, end: 20220406
  2. HIZENTRA [Suspect]
     Active Substance: HUMAN IMMUNOGLOBULIN G
     Indication: Primary immunodeficiency syndrome
     Dosage: 15 GRAM
     Route: 065
     Dates: end: 20210930
  3. HIZENTRA [Suspect]
     Active Substance: HUMAN IMMUNOGLOBULIN G
     Dosage: UNK UNK, QW
     Route: 058
     Dates: start: 202008
  4. HIZENTRA [Suspect]
     Active Substance: HUMAN IMMUNOGLOBULIN G
     Dosage: UNK UNK, QW
     Route: 058
     Dates: start: 2022
  5. HIZENTRA [Suspect]
     Active Substance: HUMAN IMMUNOGLOBULIN G
     Dosage: 10 GRAM, QW
     Route: 058
     Dates: start: 20220810
  6. HIZENTRA [Suspect]
     Active Substance: HUMAN IMMUNOGLOBULIN G
     Dosage: UNK
     Route: 065
     Dates: start: 20220818
  7. HIZENTRA [Suspect]
     Active Substance: HUMAN IMMUNOGLOBULIN G
     Dosage: UNK UNK, QW
     Route: 058
     Dates: start: 20200801
  8. HIZENTRA [Suspect]
     Active Substance: HUMAN IMMUNOGLOBULIN G
     Dosage: UNK
     Route: 058
     Dates: start: 20220915, end: 20220915
  9. HIZENTRA [Suspect]
     Active Substance: HUMAN IMMUNOGLOBULIN G
     Dosage: UNK
     Route: 058
     Dates: start: 20221103
  10. HIZENTRA [Suspect]
     Active Substance: HUMAN IMMUNOGLOBULIN G
     Dosage: UNK
     Route: 058
     Dates: start: 20221123
  11. AMLODIPINE [Concomitant]
     Active Substance: AMLODIPINE BESYLATE
  12. ATORVASTATIN [Concomitant]
     Active Substance: ATORVASTATIN
  13. BETAMETHASONE [Concomitant]
     Active Substance: BETAMETHASONE
  14. BUDESONIDE\FORMOTEROL [Concomitant]
     Active Substance: BUDESONIDE\FORMOTEROL
  15. CHOLESTYRAMINE [Concomitant]
     Active Substance: CHOLESTYRAMINE
  16. CITALOPRAM [Concomitant]
     Active Substance: CITALOPRAM HYDROBROMIDE
  17. CLOBETASOL [Concomitant]
     Active Substance: CLOBETASOL
  18. ELIQUIS [Concomitant]
     Active Substance: APIXABAN
  19. FLUOCINONIDE [Concomitant]
     Active Substance: FLUOCINONIDE
  20. GABAPENTIN [Concomitant]
     Active Substance: GABAPENTIN
  21. LEVOTHYROXINE [Concomitant]
     Active Substance: LEVOTHYROXINE
  22. LOSARTAN [Concomitant]
     Active Substance: LOSARTAN
  23. MELATONIN [Concomitant]
     Active Substance: MELATONIN
  24. OMEPRAZOLE [Concomitant]
     Active Substance: OMEPRAZOLE
  25. PREDNISONE [Concomitant]
     Active Substance: PREDNISONE
  26. PREDNISONE [Concomitant]
     Active Substance: PREDNISONE
     Dosage: 30 MILLIGRAM FOR 3 DAYS
  27. PREDNISONE [Concomitant]
     Active Substance: PREDNISONE
     Dosage: 10 UNK
  28. ALBUTEROL [Concomitant]
     Active Substance: ALBUTEROL
  29. SUMATRIPTAN [Concomitant]
     Active Substance: SUMATRIPTAN
  30. TACROLIMUS [Concomitant]
     Active Substance: TACROLIMUS
  31. VITAMIN B12 [Concomitant]
     Active Substance: CYANOCOBALAMIN
  32. VITAMIN D3 [Concomitant]
     Active Substance: CHOLECALCIFEROL
  33. BENADRYL [Concomitant]
     Active Substance: DIPHENHYDRAMINE HYDROCHLORIDE
     Indication: Premedication
     Dosage: UNK
     Dates: start: 202008, end: 202108
  34. TYLENOL [Concomitant]
     Active Substance: ACETAMINOPHEN
     Indication: Premedication
     Dosage: UNK
     Dates: start: 202008, end: 202108
  35. HYDROCORTISONE [Concomitant]
     Active Substance: HYDROCORTISONE
     Indication: Premedication
  36. HYDROCORTISONE [Concomitant]
     Active Substance: HYDROCORTISONE
     Indication: Premedication
  37. ALLEGRA [Concomitant]
     Active Substance: FEXOFENADINE HYDROCHLORIDE
     Indication: Premedication
     Dosage: UNK, QD
  38. ALLEGRA [Concomitant]
     Active Substance: FEXOFENADINE HYDROCHLORIDE
     Dosage: EXTRA DOSE PRIOR TO INFUSION
  39. PREDNISONE [Concomitant]
     Active Substance: PREDNISONE
     Indication: Premedication
     Dosage: 30 MIN PRIOR TO INFUSION

REACTIONS (55)
  - Gastroenteritis [Recovering/Resolving]
  - Nausea [Recovering/Resolving]
  - Vomiting [Recovering/Resolving]
  - Diarrhoea [Recovering/Resolving]
  - Infusion site rash [Recovering/Resolving]
  - Rash papular [Recovering/Resolving]
  - Rash erythematous [Recovering/Resolving]
  - Infusion site swelling [Unknown]
  - No adverse event [Unknown]
  - Product dose omission issue [Unknown]
  - Injection site swelling [Unknown]
  - Injection site rash [Unknown]
  - Rash papular [Unknown]
  - Erythema [Unknown]
  - Feeling hot [Unknown]
  - No adverse event [Unknown]
  - Insurance issue [Unknown]
  - Injection site swelling [Not Recovered/Not Resolved]
  - Injection site rash [Not Recovered/Not Resolved]
  - Rash papular [Not Recovered/Not Resolved]
  - Swelling [Not Recovered/Not Resolved]
  - Pain [Not Recovered/Not Resolved]
  - Infusion site swelling [Not Recovered/Not Resolved]
  - Musculoskeletal chest pain [Not Recovered/Not Resolved]
  - Dyspnoea [Not Recovered/Not Resolved]
  - Oxygen saturation decreased [Recovered/Resolved]
  - Infusion site warmth [Not Recovered/Not Resolved]
  - Pulmonary oedema [Not Recovered/Not Resolved]
  - Pulmonary pain [Not Recovered/Not Resolved]
  - No adverse event [Not Recovered/Not Resolved]
  - Product dose omission issue [Not Recovered/Not Resolved]
  - Fatigue [Unknown]
  - Oxygen saturation decreased [Not Recovered/Not Resolved]
  - Infusion site extravasation [Recovered/Resolved]
  - Infusion site extravasation [Unknown]
  - Infusion site haemorrhage [Unknown]
  - Injection site rash [Unknown]
  - Rash papular [Unknown]
  - Erythema [Unknown]
  - Feeling hot [Unknown]
  - Infusion site pain [Unknown]
  - Infusion site induration [Unknown]
  - Infusion site mass [Unknown]
  - Infusion site extravasation [Not Recovered/Not Resolved]
  - Infusion site haemorrhage [Not Recovered/Not Resolved]
  - Infusion site swelling [Not Recovered/Not Resolved]
  - Scar [Unknown]
  - Infusion site extravasation [Unknown]
  - Infusion site haemorrhage [Unknown]
  - Injection site swelling [Unknown]
  - Infusion site extravasation [Unknown]
  - Infusion site haemorrhage [Unknown]
  - Injection site swelling [Unknown]
  - Ill-defined disorder [Unknown]
  - Injection site discharge [Not Recovered/Not Resolved]

NARRATIVE: CASE EVENT DATE: 20200801
